FAERS Safety Report 9530817 (Version 1)
Quarter: 2013Q3

REPORT INFORMATION
  Report Type: Spontaneous
  Country: US (occurrence: US)
  Receive Date: 20130918
  Receipt Date: 20130918
  Transmission Date: 20140515
  Serious: No
  Sender: FDA-Public Use
  Company Number: US-BAYER-2013-112547

PATIENT
  Sex: Female
  Weight: 81.63 kg

DRUGS (2)
  1. BETASERON [Suspect]
     Dosage: 0.25 MG, QOD
     Route: 058
  2. PROZAC [Concomitant]
     Dosage: 10 MG, UNK

REACTIONS (1)
  - Abdominal discomfort [Unknown]
